FAERS Safety Report 24202633 (Version 1)
Quarter: 2024Q3

REPORT INFORMATION
  Report Type: Spontaneous
  Country: US (occurrence: US)
  Receive Date: 20240813
  Receipt Date: 20240813
  Transmission Date: 20241016
  Serious: Yes (Other)
  Sender: REGENERON
  Company Number: US-REGENERON PHARMACEUTICALS, INC.-2024-108917

PATIENT
  Sex: Female

DRUGS (1)
  1. EYLEA [Suspect]
     Active Substance: AFLIBERCEPT
     Indication: Macular degeneration
     Dosage: UNK, FORMULATION: UNKNOWN

REACTIONS (5)
  - Dementia Alzheimer^s type [Unknown]
  - Hip fracture [Unknown]
  - Fall [Unknown]
  - Gait disturbance [Unknown]
  - Ill-defined disorder [Unknown]
